FAERS Safety Report 11212692 (Version 1)
Quarter: 2015Q2

REPORT INFORMATION
  Report Type: Spontaneous
  Country: US (occurrence: None)
  Receive Date: 20150622
  Receipt Date: 20150622
  Transmission Date: 20150821
  Serious: No
  Sender: FDA-Public Use
  Company Number: None

PATIENT
  Age: 61 Year
  Sex: Male
  Weight: 70.31 kg

DRUGS (9)
  1. ASPIRIN. [Concomitant]
     Active Substance: ASPIRIN
  2. PROSTATE ESSENTIALS PLUS [Concomitant]
  3. ZINC [Concomitant]
     Active Substance: ZINC\ZINC CHLORIDE
  4. SUMATRIPTAN. [Concomitant]
     Active Substance: SUMATRIPTAN
  5. SAW PALMETTO [Concomitant]
     Active Substance: SAW PALMETTO
  6. NITROFURANTOIN 100MG ALVOGEN [Suspect]
     Active Substance: NITROFURANTOIN
     Indication: URINARY TRACT INFECTION
     Route: 048
     Dates: start: 20150506, end: 20150616
  7. GINSENG [Concomitant]
     Active Substance: ASIAN GINSENG
  8. STINGING NETTLE [Concomitant]
     Active Substance: HERBALS
  9. SELENIUM [Concomitant]
     Active Substance: SELENIUM

REACTIONS (7)
  - Influenza like illness [None]
  - Rash [None]
  - Myalgia [None]
  - Arthralgia [None]
  - Fatigue [None]
  - Chest discomfort [None]
  - Pruritus [None]

NARRATIVE: CASE EVENT DATE: 20150608
